FAERS Safety Report 4980445-1 (Version None)
Quarter: 2006Q2

REPORT INFORMATION
  Report Type: 
  Country: None (occurrence: None)
  Receive Date: 20060424
  Receipt Date: 20060411
  Transmission Date: 20061013
  Serious: Yes (Other)
  Sender: FDA-Public Use
  Company Number: BE-GLAXOSMITHKLINE-B0421007A

PATIENT
  Age: 44 Year
  Sex: Male
  Weight: 120 kg

DRUGS (1)
  1. VALACYCLOVIR HCL [Suspect]
     Dosage: 2TAB TWICE PER DAY
     Route: 065

REACTIONS (1)
  - HAEMOLYTIC ANAEMIA [None]
